FAERS Safety Report 7775543-3 (Version None)
Quarter: 2011Q3

REPORT INFORMATION
  Report Type: 
  Country: None (occurrence: None)
  Receive Date: 20110923
  Receipt Date: 20110914
  Transmission Date: 20111222
  Serious: Yes (Other)
  Sender: FDA-Public Use
  Company Number: CA-JNJFOC-20110906864

PATIENT
  Sex: Female
  Weight: 59.5 kg

DRUGS (6)
  1. REMICADE [Suspect]
     Route: 042
     Dates: start: 20100602
  2. TYLENOL W/ CODEINE [Suspect]
  3. REMICADE [Suspect]
     Indication: RHEUMATOID ARTHRITIS
     Route: 042
     Dates: start: 20110914
  4. METHOTREXATE [Concomitant]
     Route: 048
  5. FOLIC ACID [Concomitant]
     Route: 048
  6. TYLENOL W/ CODEINE [Suspect]
     Indication: PRODUCT USED FOR UNKNOWN INDICATION
     Dates: start: 20110914

REACTIONS (4)
  - INFUSION RELATED REACTION [None]
  - FALL [None]
  - NAUSEA [None]
  - VOMITING [None]
